FAERS Safety Report 4603842-2 (Version None)
Quarter: 2005Q1

REPORT INFORMATION
  Report Type: 
  Country: None (occurrence: None)
  Receive Date: 20050308
  Receipt Date: 20050222
  Transmission Date: 20050727
  Serious: Yes (Hospitalization)
  Sender: FDA-Public Use
  Company Number: CLOF-10004

PATIENT
  Age: 20 Year
  Sex: Male
  Weight: 68 kg

DRUGS (6)
  1. CLOLAR [Suspect]
     Indication: ACUTE LYMPHOCYTIC LEUKAEMIA RECURRENT
     Dosage: 52 MG/M2 QD IV
     Route: 042
     Dates: start: 20050214, end: 20050218
  2. VANCOMYCIN [Concomitant]
  3. IMIPEM [Concomitant]
  4. AMIKACIN [Concomitant]
  5. AMBISOME [Concomitant]
  6. ACYCLOVIR [Concomitant]

REACTIONS (1)
  - PANCREATITIS [None]
